FAERS Safety Report 19241046 (Version 2)
Quarter: 2022Q1

REPORT INFORMATION
  Report Type: Spontaneous
  Country: US (occurrence: US)
  Receive Date: 20210511
  Receipt Date: 20220308
  Transmission Date: 20220423
  Serious: No
  Sender: FDA-Public Use
  Company Number: US-SA-SAC20210506000181

PATIENT
  Sex: Male

DRUGS (1)
  1. DUPIXENT [Suspect]
     Active Substance: DUPILUMAB
     Dosage: 300 MG, QOW
     Route: 058

REACTIONS (9)
  - Pruritus [Unknown]
  - Erythema [Unknown]
  - Dry skin [Unknown]
  - Prostatic disorder [Unknown]
  - Nocturia [Unknown]
  - Arthralgia [Not Recovered/Not Resolved]
  - Peripheral swelling [Not Recovered/Not Resolved]
  - Therapeutic product effect incomplete [Unknown]
  - Skin exfoliation [Unknown]
